FAERS Safety Report 6639339-8 (Version None)
Quarter: 2010Q1

REPORT INFORMATION
  Report Type: 
  Country: None (occurrence: None)
  Receive Date: 20100315
  Receipt Date: 20100301
  Transmission Date: 20100710
  Serious: Yes (Life-Threatening, Other)
  Sender: FDA-Public Use
  Company Number: AVE_01038_2009

PATIENT
  Sex: Female

DRUGS (2)
  1. CLONIDINE [Suspect]
     Indication: HYPERTENSION
     Dosage: 0.2 MG QD, VIA 1/WEEKLY PATCH TRANSDERMAL
     Route: 062
     Dates: start: 20091010, end: 20091011
  2. CATAPRES [Concomitant]

REACTIONS (7)
  - BLOOD PRESSURE INCREASED [None]
  - CRYING [None]
  - DYSPNOEA [None]
  - FEELING ABNORMAL [None]
  - NAUSEA [None]
  - PANIC ATTACK [None]
  - SOMNOLENCE [None]
